FAERS Safety Report 13679476 (Version 7)
Quarter: 2018Q3

REPORT INFORMATION
  Report Type: Spontaneous
  Country: JP (occurrence: JP)
  Receive Date: 20170622
  Receipt Date: 20180820
  Transmission Date: 20181010
  Serious: Yes (Hospitalization)
  Sender: FDA-Public Use
  Company Number: JP-UNITED THERAPEUTICS-UNT-2017-006524

PATIENT
  Age: 31 Year
  Sex: Female
  Weight: 53 kg

DRUGS (3)
  1. REMODULIN [Suspect]
     Active Substance: TREPROSTINIL
     Dosage: UNK
     Route: 041
     Dates: start: 2018
  2. REMODULIN [Suspect]
     Active Substance: TREPROSTINIL
     Indication: PULMONARY ARTERIAL HYPERTENSION
     Dosage: UNK, CONTINUING
     Route: 058
     Dates: start: 20170501
  3. REMODULIN [Suspect]
     Active Substance: TREPROSTINIL
     Indication: PULMONARY ARTERIAL HYPERTENSION
     Dosage: 0.031 ?G/KG, CONTINUING
     Route: 041
     Dates: start: 20161118, end: 20170501

REACTIONS (3)
  - Pseudomonas infection [Unknown]
  - Infusion site pain [Unknown]
  - Device related sepsis [Recovered/Resolved]

NARRATIVE: CASE EVENT DATE: 20170421
